FAERS Safety Report 8513249-3 (Version None)
Quarter: 2012Q3

REPORT INFORMATION
  Report Type: 
  Country: None (occurrence: None)
  Receive Date: 20120716
  Receipt Date: 20120703
  Transmission Date: 20120928
  Serious: Yes (Other)
  Sender: FDA-Public Use
  Company Number: US-BAXTER-2012BAX010113

PATIENT
  Sex: Female
  Weight: 95.45 kg

DRUGS (39)
  1. CLEOCIN HYDROCHLORIDE [Suspect]
     Route: 048
  2. HYDROXYCHLOROQUINE SULFATE [Concomitant]
  3. LANSOPRAZOLE [Concomitant]
  4. LUXIQ [Concomitant]
  5. AMERGE [Concomitant]
     Indication: MIGRAINE
  6. ASACOL [Concomitant]
  7. SUMAXIN [Concomitant]
  8. XOPENEX [Concomitant]
     Indication: ASTHMA
     Dosage: 1 VIAL AS NEEDED
  9. GUAIFENESIN [Concomitant]
  10. GARLIC [Concomitant]
     Route: 048
  11. HYDROXYZINE [Concomitant]
     Dosage: 1-2 TABS
  12. MULTI-VITAMINS [Concomitant]
     Route: 048
  13. MAGNESIUM SULFATE [Concomitant]
     Route: 048
  14. SPIRIVA [Concomitant]
     Dosage: 1 INH
  15. FLUCONAZOLE [Concomitant]
     Route: 048
  16. CALCIUM AND VITAMIN D [Concomitant]
  17. CHROMIUM CHLORIDE [Concomitant]
     Route: 048
  18. MAGNESIUM SULFATE [Concomitant]
     Route: 048
  19. ADVAIR DISKUS 100/50 [Concomitant]
     Dosage: 1 INH
  20. NASONEX [Concomitant]
  21. QUALAQUIN [Concomitant]
     Dosage: 1 AT BEDTIME
  22. SPIRONOLACTONE [Concomitant]
  23. SUPREMA DOPHILUS [Concomitant]
     Dosage: 4 BILLION
  24. CO Q-10 [Concomitant]
  25. CINNAMON [Concomitant]
  26. ACETAMINOPHEN [Concomitant]
     Indication: PREMEDICATION
     Route: 048
     Dates: start: 20120301
  27. QVAR 40 [Concomitant]
     Dosage: 2 INH
  28. SINGULAIR [Concomitant]
     Dosage: 1 AT BEDTIME
  29. PROVENTIL [Concomitant]
     Indication: ASTHMA
     Dosage: 2 PUFFS
  30. LOVAZA [Concomitant]
  31. BIOTIN [Concomitant]
     Route: 048
  32. GAMMAGARD LIQUID [Suspect]
     Indication: IMMUNODEFICIENCY
     Route: 042
     Dates: start: 20120222
  33. ATARAX [Concomitant]
     Indication: PREMEDICATION
     Route: 048
     Dates: start: 20120301
  34. TRAZODONE HYDROCHLORIDE [Concomitant]
     Dosage: 1-2 AT BEDTIME
  35. SKELAXIN [Concomitant]
     Dosage: AS NEEDED
  36. PENTAZOCINE LACTATE [Concomitant]
     Dosage: 25-650  MG
  37. RESTASIS [Concomitant]
     Dosage: 1 DRIP EACH EYE
  38. LISINOPRIL [Concomitant]
  39. ATROVENT [Concomitant]
     Dosage: 2 SPRAYS

REACTIONS (8)
  - MIGRAINE [None]
  - DRUG INEFFECTIVE [None]
  - HEADACHE [None]
  - SINUSITIS [None]
  - UNEVALUABLE EVENT [None]
  - ALOPECIA [None]
  - OEDEMA PERIPHERAL [None]
  - INFLUENZA LIKE ILLNESS [None]
